FAERS Safety Report 8450275-7 (Version None)
Quarter: 2012Q2

REPORT INFORMATION
  Report Type: 
  Country: None (occurrence: None)
  Receive Date: 20120614
  Receipt Date: 20120614
  Transmission Date: 20120825
  Serious: Yes (Other)
  Sender: FDA-Public Use
  Company Number: None

PATIENT
  Age: 29 Year
  Sex: Female
  Weight: 51 kg

DRUGS (1)
  1. REACTINE EXTRA STRENGTH TYLENOL JOHNSON + JOHNSON [Suspect]
     Indication: HYPERSENSITIVITY
     Dosage: 1 DAYLY PO
     Route: 048
     Dates: start: 20120501, end: 20120601

REACTIONS (2)
  - DRY MOUTH [None]
  - TACHYCARDIA [None]
